FAERS Safety Report 24916609 (Version 2)
Quarter: 2025Q1

REPORT INFORMATION
  Report Type: Report from Study
  Country: PL (occurrence: PL)
  Receive Date: 20250203
  Receipt Date: 20250303
  Transmission Date: 20250409
  Serious: Yes (Hospitalization, Other)
  Sender: TAKEDA
  Company Number: PL-TAKEDA-2025TUS009888

PATIENT
  Age: 52 Year
  Sex: Female

DRUGS (4)
  1. BRIGATINIB [Suspect]
     Active Substance: BRIGATINIB
     Indication: Non-small cell lung cancer
     Dosage: 180 MILLIGRAM, QD
     Dates: start: 20231121, end: 20241216
  2. BRIGATINIB [Suspect]
     Active Substance: BRIGATINIB
     Dosage: 180 MILLIGRAM, QD
     Dates: start: 20241224
  3. BRIGATINIB [Suspect]
     Active Substance: BRIGATINIB
     Dosage: 90 MILLIGRAM, QD
     Dates: start: 20250109, end: 20250115
  4. BRIGATINIB [Suspect]
     Active Substance: BRIGATINIB

REACTIONS (6)
  - Complex regional pain syndrome [Not Recovered/Not Resolved]
  - Neuralgia [Not Recovered/Not Resolved]
  - Infection [Unknown]
  - Faeces discoloured [Unknown]
  - Heart rate increased [Unknown]
  - Anaemia [Unknown]

NARRATIVE: CASE EVENT DATE: 20241001
